FAERS Safety Report 8947838 (Version 1)
Quarter: 2012Q4

REPORT INFORMATION
  Report Type: 
  Country: US (occurrence: US)
  Receive Date: 20121204
  Receipt Date: 20121204
  Transmission Date: 20130627
  Serious: Yes (Hospitalization)
  Sender: FDA-Public Use
  Company Number: US-PFIZER INC-2012299313

PATIENT
  Age: 71 Year
  Sex: Female

DRUGS (4)
  1. PACLITAXEL [Suspect]
     Indication: OVARIAN CANCER STAGE III
     Dosage: 175 mg/m2, first cycle
  2. DEXAMETHASONE SODIUM PHOSPHATE [Suspect]
     Indication: OVARIAN CANCER STAGE III
     Dosage: (20 mg the night prior to chemotherapy, 20 mg the morning of chemotherapy)
  3. DEXAMETHASONE SODIUM PHOSPHATE [Suspect]
     Dosage: 8 mg, Daily for the 3 days following chemotherapy
  4. CARBOPLATIN [Suspect]
     Indication: OVARIAN CANCER STAGE III
     Dosage: AUC 6, first cycle

REACTIONS (1)
  - Intestinal perforation [Recovered/Resolved]
